FAERS Safety Report 5097052-5 (Version None)
Quarter: 2006Q3

REPORT INFORMATION
  Report Type: 
  Country: None (occurrence: None)
  Receive Date: 20060901
  Receipt Date: 20060823
  Transmission Date: 20061208
  Serious: Yes (Hospitalization, Other)
  Sender: FDA-Public Use
  Company Number: 2006102905

PATIENT
  Age: 96 Year
  Sex: Male

DRUGS (5)
  1. PHENYTOIN [Suspect]
     Indication: CONVULSION
     Dosage: (300 MG), ORAL
     Route: 048
     Dates: start: 20060401, end: 20060626
  2. ASPIRIN [Concomitant]
  3. DIPYRIDAMOLE [Concomitant]
  4. FUROSEMIDE [Concomitant]
  5. PERINDOPRIL ERBUMINE [Concomitant]

REACTIONS (2)
  - DRUG ERUPTION [None]
  - ECZEMA [None]
